FAERS Safety Report 4937429-9 (Version None)
Quarter: 2006Q1

REPORT INFORMATION
  Report Type: 
  Country: None (occurrence: None)
  Receive Date: 20060309
  Receipt Date: 20060301
  Transmission Date: 20060701
  Serious: Yes (Other)
  Sender: FDA-Public Use
  Company Number: US-KINGPHARMUSA00001-K200600294

PATIENT
  Sex: Female

DRUGS (5)
  1. ALTACE [Suspect]
     Indication: HYPERTENSION
     Dosage: 10 MG, QD
     Route: 048
     Dates: start: 20060223, end: 20060223
  2. XANAX [Concomitant]
     Dosage: .5 MG, BID, PRN
     Route: 048
     Dates: start: 20040101
  3. DIOVAN [Concomitant]
     Dosage: ^126-12.5^
     Route: 048
     Dates: start: 20040101
  4. METOPROLOL [Concomitant]
     Dosage: 100 MG, BID
     Route: 048
     Dates: start: 20040101
  5. CLONIDINE [Concomitant]
     Dosage: ^1 MG^, TID
     Route: 048
     Dates: start: 20040101

REACTIONS (6)
  - COLD SWEAT [None]
  - MYOCARDIAL INFARCTION [None]
  - NAUSEA [None]
  - PAIN [None]
  - PALPITATIONS [None]
  - STOMACH DISCOMFORT [None]
